FAERS Safety Report 7603146-X (Version None)
Quarter: 2011Q3

REPORT INFORMATION
  Report Type: 
  Country: None (occurrence: None)
  Receive Date: 20110712
  Receipt Date: 20110705
  Transmission Date: 20111222
  Serious: Yes (Other)
  Sender: FDA-Public Use
  Company Number: JP-CELGENEUS-087-21660-11070547

PATIENT
  Sex: Female
  Weight: 55 kg

DRUGS (5)
  1. NOVORAPID [Concomitant]
     Indication: DIABETES MELLITUS
     Dosage: 12 IU (INTERNATIONAL UNIT)
     Route: 065
     Dates: start: 20110426
  2. LOXONIN [Concomitant]
     Indication: TUMOUR PAIN
     Route: 065
  3. ABRAXANE [Suspect]
     Dosage: 228 MILLIGRAM
     Route: 051
     Dates: start: 20110523, end: 20110620
  4. CATLEP [Concomitant]
     Indication: TUMOUR PAIN
     Route: 065
  5. LEVEMIR [Concomitant]
     Indication: DIABETES MELLITUS
     Dosage: 3 IU (INTERNATIONAL UNIT)
     Route: 065
     Dates: start: 20110426

REACTIONS (1)
  - PULMONARY MYCOSIS [None]
